FAERS Safety Report 5586026-3 (Version None)
Quarter: 2008Q1

REPORT INFORMATION
  Report Type: 
  Country: None (occurrence: None)
  Receive Date: 20080104
  Receipt Date: 20071221
  Transmission Date: 20080703
  Serious: Yes (Hospitalization)
  Sender: FDA-Public Use
  Company Number: 2007P1000738

PATIENT
  Age: 8 Year
  Sex: Male

DRUGS (3)
  1. BUSULFAN (BUSULFAN) [Suspect]
     Indication: STEM CELL TRANSPLANT
     Dosage: 12 ML; IV, 16 ML; IV, 4 ML; IV
     Route: 042
     Dates: start: 20070612, end: 20070612
  2. BUSULFAN (BUSULFAN) [Suspect]
     Indication: STEM CELL TRANSPLANT
     Dosage: 12 ML; IV, 16 ML; IV, 4 ML; IV
     Route: 042
     Dates: start: 20070613, end: 20070615
  3. BUSULFAN (BUSULFAN) [Suspect]
     Indication: STEM CELL TRANSPLANT
     Dosage: 12 ML; IV, 16 ML; IV, 4 ML; IV
     Route: 042
     Dates: start: 20070616, end: 20070616

REACTIONS (14)
  - ACUTE GRAFT VERSUS HOST DISEASE [None]
  - ANOREXIA [None]
  - BLISTER [None]
  - DIABETES MELLITUS [None]
  - DIARRHOEA [None]
  - FEBRILE NEUTROPENIA [None]
  - HAEMATOCHEZIA [None]
  - HEPATIC FUNCTION ABNORMAL [None]
  - MALAISE [None]
  - NAUSEA [None]
  - PNEUMONIA FUNGAL [None]
  - RASH [None]
  - THROMBOTIC MICROANGIOPATHY [None]
  - VOMITING [None]
